FAERS Safety Report 7411904-X (Version None)
Quarter: 2011Q2

REPORT INFORMATION
  Report Type: 
  Country: None (occurrence: None)
  Receive Date: 20110413
  Receipt Date: 20110401
  Transmission Date: 20111010
  Serious: Yes (Other)
  Sender: FDA-Public Use
  Company Number: RO-JNJFOC-20110404352

PATIENT
  Age: 15 Year
  Sex: Male
  Weight: 39 kg

DRUGS (2)
  1. HALOPERIDOL [Suspect]
     Indication: AFFECT LABILITY
     Route: 065
  2. HALOPERIDOL [Suspect]
     Indication: LEARNING DISORDER
     Route: 065

REACTIONS (3)
  - HYPOTHALAMO-PITUITARY DISORDER [None]
  - DELAYED PUBERTY [None]
  - INTENTIONAL DRUG MISUSE [None]
